FAERS Safety Report 15300471 (Version 1)
Quarter: 2018Q3

REPORT INFORMATION
  Report Type: Spontaneous
  Country: US (occurrence: US)
  Receive Date: 20180808
  Receipt Date: 20180808
  Transmission Date: 20181010
  Serious: Yes (Hospitalization)
  Sender: FDA-Public Use
  Company Number: None

PATIENT
  Sex: Male

DRUGS (17)
  1. CENTRUM [Concomitant]
     Active Substance: VITAMINS
  2. GLIMEPIRIDE. [Concomitant]
     Active Substance: GLIMEPIRIDE
  3. HYDROXYZ HCL [Concomitant]
     Active Substance: HYDROXYZINE HYDROCHLORIDE
  4. EPCLUSA [Suspect]
     Active Substance: SOFOSBUVIR\VELPATASVIR
     Indication: HEPATITIS C
     Route: 048
     Dates: start: 20180710
  5. BD ULTRA FIN MIS [Concomitant]
  6. SUPER B [Concomitant]
  7. ALOGLIPTIN. [Concomitant]
     Active Substance: ALOGLIPTIN
  8. FAMOTIDINE. [Concomitant]
     Active Substance: FAMOTIDINE
  9. GEMFIBROZIL. [Concomitant]
     Active Substance: GEMFIBROZIL
  10. GENERLAC [Concomitant]
     Active Substance: LACTULOSE
  11. LACTULOSE. [Concomitant]
     Active Substance: LACTULOSE
  12. METFORMIN [Concomitant]
     Active Substance: METFORMIN HYDROCHLORIDE
  13. OMEPRAZOLE. [Concomitant]
     Active Substance: OMEPRAZOLE
  14. XIFAXAN [Concomitant]
     Active Substance: RIFAXIMIN
  15. RIBAVIRIN. [Suspect]
     Active Substance: RIBAVIRIN
     Indication: LIVER DISORDER
     Route: 048
     Dates: start: 20180710
  16. SPIRONOLACT [Concomitant]
     Active Substance: SPIRONOLACTONE
  17. TRAMADOL. [Concomitant]
     Active Substance: TRAMADOL

REACTIONS (2)
  - Pancreatitis [None]
  - Hepatic encephalopathy [None]
